FAERS Safety Report 9032690 (Version 2)
Quarter: 2013Q1

REPORT INFORMATION
  Report Type: Spontaneous
  Country: US (occurrence: None)
  Receive Date: 20130110
  Receipt Date: 20130122
  Transmission Date: 20140127
  Serious: Yes (Hospitalization)
  Sender: FDA-Public Use
  Company Number: 2013AL000003

PATIENT
  Age: 65 Year
  Sex: Female

DRUGS (1)
  1. FOLOTYN (PRALATREXATE) [Suspect]
     Indication: T-CELL LYMPHOMA
     Route: 042
     Dates: start: 20121031

REACTIONS (4)
  - Deep vein thrombosis [None]
  - Mucosal inflammation [None]
  - Wound [None]
  - Disease progression [None]
